FAERS Safety Report 26168868 (Version 1)
Quarter: 2025Q4

REPORT INFORMATION
  Report Type: Spontaneous
  Country: US (occurrence: None)
  Receive Date: 20251217
  Receipt Date: 20251217
  Transmission Date: 20260117
  Serious: No
  Sender: PACIRA
  Company Number: US-ORG100016242-2025000306

PATIENT
  Age: 18 Year
  Sex: Male

DRUGS (1)
  1. EXPAREL [Suspect]
     Active Substance: BUPIVACAINE
     Indication: Wisdom teeth removal
     Dosage: NOT PROVIDED
     Route: 065
     Dates: start: 20250804, end: 20250804

REACTIONS (4)
  - Oral pain [Unknown]
  - Oropharyngeal discomfort [Unknown]
  - Procedural pain [Unknown]
  - Insomnia [Unknown]
